FAERS Safety Report 11913974 (Version 2)
Quarter: 2016Q1

REPORT INFORMATION
  Report Type: Spontaneous
  Country: US (occurrence: US)
  Receive Date: 20160113
  Receipt Date: 20160311
  Transmission Date: 20160526
  Serious: No
  Sender: FDA-Public Use
  Company Number: US-BIOGEN-2015BI00164048

PATIENT
  Age: 54 Year
  Sex: Female

DRUGS (1)
  1. PLEGRIDY [Suspect]
     Active Substance: PEGINTERFERON BETA-1A
     Indication: MULTIPLE SCLEROSIS
     Route: 058
     Dates: start: 20150814, end: 20151026

REACTIONS (7)
  - White blood cell count decreased [Recovered/Resolved]
  - Urine leukocyte esterase positive [Unknown]
  - Alanine aminotransferase increased [Not Recovered/Not Resolved]
  - Blood bilirubin increased [Recovered/Resolved]
  - Mean cell haemoglobin decreased [Unknown]
  - Aspartate aminotransferase increased [Not Recovered/Not Resolved]
  - Cells in urine [Unknown]

NARRATIVE: CASE EVENT DATE: 20150917
